FAERS Safety Report 19872961 (Version 1)
Quarter: 2021Q3

REPORT INFORMATION
  Report Type: Spontaneous
  Country: DE (occurrence: DE)
  Receive Date: 20210923
  Receipt Date: 20210923
  Transmission Date: 20211014
  Serious: Yes (Hospitalization)
  Sender: FDA-Public Use
  Company Number: DE-DRREDDYS-SPO/GER/21/0140315

PATIENT
  Age: 44 Year
  Sex: Male

DRUGS (12)
  1. VALPROIC ACID. [Suspect]
     Active Substance: VALPROIC ACID
     Indication: STATUS EPILEPTICUS
  2. PREGABALIN. [Concomitant]
     Active Substance: PREGABALIN
     Indication: RASMUSSEN ENCEPHALITIS
  3. LEVETIRACETAM. [Concomitant]
     Active Substance: LEVETIRACETAM
     Indication: STATUS EPILEPTICUS
  4. LAMOTRIGINE. [Suspect]
     Active Substance: LAMOTRIGINE
     Indication: RASMUSSEN ENCEPHALITIS
  5. CLONAZEPAM. [Suspect]
     Active Substance: CLONAZEPAM
     Indication: RASMUSSEN ENCEPHALITIS
  6. LEVETIRACETAM. [Concomitant]
     Active Substance: LEVETIRACETAM
     Indication: RASMUSSEN ENCEPHALITIS
  7. PERAMPANEL [Concomitant]
     Active Substance: PERAMPANEL
     Indication: STATUS EPILEPTICUS
  8. VALPROIC ACID. [Suspect]
     Active Substance: VALPROIC ACID
     Indication: RASMUSSEN ENCEPHALITIS
  9. LAMOTRIGINE. [Suspect]
     Active Substance: LAMOTRIGINE
     Indication: STATUS EPILEPTICUS
  10. PERAMPANEL [Concomitant]
     Active Substance: PERAMPANEL
     Indication: RASMUSSEN ENCEPHALITIS
  11. CLONAZEPAM. [Suspect]
     Active Substance: CLONAZEPAM
     Indication: STATUS EPILEPTICUS
  12. PREGABALIN. [Concomitant]
     Active Substance: PREGABALIN
     Indication: STATUS EPILEPTICUS

REACTIONS (2)
  - Drug level increased [Unknown]
  - Thrombocytopenia [Unknown]
